FAERS Safety Report 6868066-7 (Version None)
Quarter: 2010Q3

REPORT INFORMATION
  Report Type: 
  Country: None (occurrence: None)
  Receive Date: 20100722
  Receipt Date: 20080514
  Transmission Date: 20110219
  Serious: No
  Sender: FDA-Public Use
  Company Number: US-PFIZER INC-2008041625

PATIENT
  Sex: Female
  Weight: 47.272 kg

DRUGS (4)
  1. CHANTIX [Suspect]
     Indication: SMOKING CESSATION THERAPY
     Route: 048
     Dates: start: 20080201
  2. BENZODIAZEPINE DERIVATIVES [Concomitant]
     Dates: start: 20080201
  3. ALL OTHER THERAPEUTIC PRODUCTS [Concomitant]
  4. LEVOTHYROXINE SODIUM [Concomitant]
     Indication: THYROID DISORDER

REACTIONS (4)
  - ABNORMAL DREAMS [None]
  - FLATULENCE [None]
  - INSOMNIA [None]
  - SLEEP DISORDER [None]
